FAERS Safety Report 8770104 (Version 1)
Quarter: 2012Q4

REPORT INFORMATION
  Report Type: 
  Country: FR (occurrence: FR)
  Receive Date: 20120904
  Receipt Date: 20120904
  Transmission Date: 20130627
  Serious: Yes (Other)
  Sender: FDA-Public Use
  Company Number: FR-AMGEN-FRASP2012030322

PATIENT
  Age: 15 Year
  Sex: Female
  Weight: 41 kg

DRUGS (2)
  1. ENBREL [Suspect]
     Indication: JUVENILE ARTHRITIS
     Dosage: UNK
     Dates: end: 201112
  2. ENBREL [Suspect]
     Dosage: 25 mg, weekly
     Dates: start: 20120111, end: 20120524

REACTIONS (1)
  - Iridocyclitis [Not Recovered/Not Resolved]
